FAERS Safety Report 17077757 (Version 1)
Quarter: 2019Q4

REPORT INFORMATION
  Report Type: Report from Study
  Country: CA (occurrence: CA)
  Receive Date: 20191126
  Receipt Date: 20191126
  Transmission Date: 20200122
  Serious: Yes (Other)
  Sender: FDA-Public Use
  Company Number: PHHY2019CA157313

PATIENT
  Age: 17 Year
  Sex: Female

DRUGS (2)
  1. ERELZI [Suspect]
     Active Substance: ETANERCEPT-SZZS
     Indication: ANKYLOSING SPONDYLITIS
     Dosage: 50 MG, QW
     Route: 058
     Dates: start: 20190620
  2. ERELZI [Suspect]
     Active Substance: ETANERCEPT-SZZS
     Dosage: 50 MG, QW
     Route: 058
     Dates: start: 201911, end: 201911

REACTIONS (9)
  - Influenza like illness [Unknown]
  - General physical health deterioration [Unknown]
  - Fatigue [Unknown]
  - Musculoskeletal stiffness [Unknown]
  - Crohn^s disease [Unknown]
  - Multiple sclerosis [Unknown]
  - Pain [Unknown]
  - Hypotension [Unknown]
  - Rash erythematous [Unknown]

NARRATIVE: CASE EVENT DATE: 20191030
